FAERS Safety Report 6254201-0 (Version None)
Quarter: 2009Q3

REPORT INFORMATION
  Report Type: 
  Country: None (occurrence: None)
  Receive Date: 20090701
  Receipt Date: 20090701
  Transmission Date: 20100115
  Serious: Yes (Other)
  Sender: FDA-Public Use
  Company Number: None

PATIENT
  Age: 76 Year
  Sex: Female

DRUGS (1)
  1. ACTONEL [Suspect]
     Indication: OSTEOPOROSIS
     Dosage: ONCE MONTHLY
     Dates: start: 20090401, end: 20090601

REACTIONS (3)
  - BURNING SENSATION [None]
  - CHAPPED LIPS [None]
  - GLOSSODYNIA [None]
